FAERS Safety Report 4531450-0 (Version None)
Quarter: 2004Q4

REPORT INFORMATION
  Report Type: 
  Country: None (occurrence: None)
  Receive Date: 20041216
  Receipt Date: 20041202
  Transmission Date: 20050328
  Serious: Yes (Other)
  Sender: FDA-Public Use
  Company Number: S04-USA-07725-01

PATIENT
  Sex: 0

DRUGS (3)
  1. LEXAPRO [Suspect]
     Dosage: 20 MG ONCE PO
     Route: 048
  2. LEXAPRO [Suspect]
     Dosage: 10 MG QD PO
     Route: 048
  3. ULTRAM [Suspect]

REACTIONS (2)
  - CONVULSION [None]
  - TREATMENT NONCOMPLIANCE [None]
